FAERS Safety Report 12153746 (Version 1)
Quarter: 2016Q1

REPORT INFORMATION
  Report Type: Spontaneous
  Country: TR (occurrence: TR)
  Receive Date: 20160307
  Receipt Date: 20160307
  Transmission Date: 20160526
  Serious: Yes (Death)
  Sender: FDA-Public Use
  Company Number: TR-ROCHE-1678024

PATIENT
  Age: 76 Year
  Sex: Male
  Weight: 72 kg

DRUGS (2)
  1. XELODA [Suspect]
     Active Substance: CAPECITABINE
     Indication: COLON CANCER METASTATIC
     Dosage: 3000MG/DAY
     Route: 048
     Dates: start: 20150327
  2. ALTUZAN [Suspect]
     Active Substance: BEVACIZUMAB
     Indication: COLON CANCER METASTATIC
     Dosage: 300MG/14 DAY
     Route: 042
     Dates: start: 20151019, end: 20151116

REACTIONS (1)
  - Hypersensitivity vasculitis [Fatal]

NARRATIVE: CASE EVENT DATE: 20151116
